FAERS Safety Report 19404876 (Version 1)
Quarter: 2021Q2

REPORT INFORMATION
  Report Type: Spontaneous
  Country: CA (occurrence: CA)
  Receive Date: 20210611
  Receipt Date: 20210611
  Transmission Date: 20210717
  Serious: Yes (Hospitalization)
  Sender: FDA-Public Use
  Company Number: CA-TILLOMEDPR-2021-EPL-001885

PATIENT
  Age: 64 Year
  Sex: Male
  Weight: 74 kg

DRUGS (4)
  1. CYTARABINE INJECTION [Concomitant]
     Active Substance: CYTARABINE
  2. CARMUSTINE. [Suspect]
     Active Substance: CARMUSTINE
     Indication: NODULAR LYMPHOCYTE PREDOMINANT HODGKIN LYMPHOMA
     Dosage: 86 MILLIGRAM, 1 DOSE PER 4W
     Route: 042
  3. MELPHALAN. [Concomitant]
     Active Substance: MELPHALAN
  4. ETOPOSIDE. [Concomitant]
     Active Substance: ETOPOSIDE

REACTIONS (1)
  - Febrile neutropenia [Recovered/Resolved]
